FAERS Safety Report 7919059-X (Version None)
Quarter: 2011Q4

REPORT INFORMATION
  Report Type: 
  Country: None (occurrence: None)
  Receive Date: 20111116
  Receipt Date: 20111107
  Transmission Date: 20120403
  Serious: Yes (Other)
  Sender: FDA-Public Use
  Company Number: CA-ASTRAZENECA-2011SE67354

PATIENT
  Age: 49 Year
  Sex: Male
  Weight: 117.9 kg

DRUGS (7)
  1. TEVA-GLYBURIDE [Concomitant]
     Route: 048
  2. TEVA-METFORMIN [Concomitant]
     Route: 048
  3. ASPIRIN [Suspect]
     Route: 048
  4. CRESTOR [Suspect]
     Route: 048
  5. PLAVIX [Suspect]
     Route: 048
  6. SANDOZ BISOPROLOL [Suspect]
     Route: 048
  7. PERINDOPRIL ERBUMINE [Suspect]
     Route: 048

REACTIONS (4)
  - MOOD SWINGS [None]
  - IRRITABILITY [None]
  - ABNORMAL BEHAVIOUR [None]
  - CONFUSIONAL STATE [None]
